FAERS Safety Report 8454961-4 (Version None)
Quarter: 2012Q2

REPORT INFORMATION
  Report Type: 
  Country: None (occurrence: None)
  Receive Date: 20120621
  Receipt Date: 20120618
  Transmission Date: 20120825
  Serious: No
  Sender: FDA-Public Use
  Company Number: US-PFIZER INC-K200801291

PATIENT
  Sex: Female
  Weight: 46.712 kg

DRUGS (1)
  1. LEVOXYL [Suspect]
     Indication: AUTOIMMUNE THYROIDITIS
     Dosage: 75 UG, 1X/DAY
     Route: 048
     Dates: start: 19860101

REACTIONS (8)
  - FEELING ABNORMAL [None]
  - POOR QUALITY DRUG ADMINISTERED [None]
  - PANIC REACTION [None]
  - ABDOMINAL PAIN UPPER [None]
  - MALAISE [None]
  - INVESTIGATION ABNORMAL [None]
  - MEMORY IMPAIRMENT [None]
  - HYPERHIDROSIS [None]
